FAERS Safety Report 9690679 (Version 1)
Quarter: 2013Q4

REPORT INFORMATION
  Report Type: Spontaneous
  Country: US (occurrence: None)
  Receive Date: 20131114
  Receipt Date: 20131114
  Transmission Date: 20140711
  Serious: Yes (Hospitalization)
  Sender: FDA-Public Use
  Company Number: None

PATIENT
  Age: 68 Year
  Sex: Male

DRUGS (7)
  1. PRADAXA [Suspect]
     Route: 048
     Dates: start: 20130729, end: 20130804
  2. NAPROXEN SODIUM [Suspect]
  3. GLYBURIDE [Concomitant]
  4. METFORMIN [Concomitant]
  5. ASPIRIN [Concomitant]
  6. FISH OIL [Concomitant]
  7. LISINOPRIL [Concomitant]

REACTIONS (5)
  - Melaena [None]
  - Dizziness [None]
  - Anaemia [None]
  - Gastritis [None]
  - Oesophageal ulcer [None]
